FAERS Safety Report 4531672-9 (Version None)
Quarter: 2004Q4

REPORT INFORMATION
  Report Type: 
  Country: None (occurrence: None)
  Receive Date: 20041216
  Receipt Date: 20041216
  Transmission Date: 20050328
  Serious: Yes (Other)
  Sender: FDA-Public Use
  Company Number: None

PATIENT
  Age: 52 Year
  Sex: Female

DRUGS (4)
  1. ROSULA GEL [Suspect]
     Indication: ROSACEA
     Dosage: APPLY TO FACE QD
     Route: 061
  2. NORITATE [Suspect]
     Indication: ROSACEA
     Dosage: APPLY TO FACE QD
     Route: 061
  3. MINOCYCLINE HCL [Concomitant]
  4. PLEXIAN [Concomitant]

REACTIONS (1)
  - ROSACEA [None]
